FAERS Safety Report 15789577 (Version 1)
Quarter: 2019Q1

REPORT INFORMATION
  Report Type: Report from Study
  Country: GB (occurrence: GB)
  Receive Date: 20190104
  Receipt Date: 20190104
  Transmission Date: 20190417
  Serious: Yes (Other)
  Sender: FDA-Public Use
  Company Number: GB-JNJFOC-20181227909

PATIENT
  Age: 42 Year
  Sex: Female

DRUGS (1)
  1. STELARA [Suspect]
     Active Substance: USTEKINUMAB
     Indication: PSORIASIS
     Route: 058
     Dates: start: 20150529

REACTIONS (3)
  - Off label use [Unknown]
  - Lower respiratory tract infection [Recovered/Resolved]
  - Asthma [Not Recovered/Not Resolved]

NARRATIVE: CASE EVENT DATE: 20150529
